FAERS Safety Report 21751805 (Version 1)
Quarter: 2022Q4

REPORT INFORMATION
  Report Type: Spontaneous
  Country: CN (occurrence: None)
  Receive Date: 20221220
  Receipt Date: 20221220
  Transmission Date: 20230113
  Serious: Yes (Other)
  Sender: FDA-Public Use
  Company Number: CN-ROCHE-3245337

PATIENT
  Age: 77 Year
  Sex: Female

DRUGS (36)
  1. MABTHERA [Suspect]
     Active Substance: RITUXIMAB
     Indication: Marginal zone lymphoma
     Dosage: D0
     Route: 065
     Dates: start: 20160927, end: 20161201
  2. MABTHERA [Suspect]
     Active Substance: RITUXIMAB
     Dosage: D0
     Route: 065
     Dates: start: 20170526
  3. MABTHERA [Suspect]
     Active Substance: RITUXIMAB
     Dosage: D0
     Route: 065
     Dates: start: 20191119
  4. MABTHERA [Suspect]
     Active Substance: RITUXIMAB
     Route: 065
     Dates: start: 20191213
  5. MABTHERA [Suspect]
     Active Substance: RITUXIMAB
     Route: 065
     Dates: start: 20200106
  6. MABTHERA [Suspect]
     Active Substance: RITUXIMAB
     Route: 065
     Dates: start: 20200708
  7. GAZYVA [Suspect]
     Active Substance: OBINUTUZUMAB
     Indication: Marginal zone lymphoma
     Dosage: 17-SEP-2022, 08-OCT-2022, 08-NOV-2022, 05-DEC-2022; D1
     Route: 042
  8. ORELABRUTINIB [Concomitant]
     Active Substance: ORELABRUTINIB
     Indication: Marginal zone lymphoma
     Dosage: 17-SEP-2022, 08-OCT-2022, 08-NOV-2022, 05-DEC-2022
  9. CYCLOPHOSPHAMIDE [Concomitant]
     Active Substance: CYCLOPHOSPHAMIDE
     Indication: Marginal zone lymphoma
     Dosage: D1
     Dates: start: 20170526
  10. CYCLOPHOSPHAMIDE [Concomitant]
     Active Substance: CYCLOPHOSPHAMIDE
     Dosage: D1
     Dates: start: 20191026
  11. CYCLOPHOSPHAMIDE [Concomitant]
     Active Substance: CYCLOPHOSPHAMIDE
     Dosage: D1
     Dates: start: 20191119
  12. CYCLOPHOSPHAMIDE [Concomitant]
     Active Substance: CYCLOPHOSPHAMIDE
     Dates: start: 20191213
  13. CYCLOPHOSPHAMIDE [Concomitant]
     Active Substance: CYCLOPHOSPHAMIDE
     Dates: start: 20200106
  14. CYCLOPHOSPHAMIDE [Concomitant]
     Active Substance: CYCLOPHOSPHAMIDE
     Dates: start: 20200708, end: 20201031
  15. CYCLOPHOSPHAMIDE [Concomitant]
     Active Substance: CYCLOPHOSPHAMIDE
     Dosage: D1
     Dates: start: 20160927, end: 20161201
  16. PIRARUBICIN [Concomitant]
     Active Substance: PIRARUBICIN
     Indication: Marginal zone lymphoma
     Dosage: D1
     Dates: start: 20160927, end: 20161201
  17. PIRARUBICIN [Concomitant]
     Active Substance: PIRARUBICIN
     Dosage: D1
     Dates: start: 20170526
  18. VINORELBINE [Concomitant]
     Active Substance: VINORELBINE TARTRATE
     Indication: Marginal zone lymphoma
     Dosage: D1
     Dates: start: 20160927, end: 20161201
  19. DEXAMETHASONE [Concomitant]
     Active Substance: DEXAMETHASONE
     Indication: Marginal zone lymphoma
     Dosage: D1-5
     Dates: start: 20160927, end: 20161201
  20. DEXAMETHASONE [Concomitant]
     Active Substance: DEXAMETHASONE
     Dosage: D1-5
     Dates: start: 20170526
  21. DEXAMETHASONE [Concomitant]
     Active Substance: DEXAMETHASONE
     Dosage: D1-5
     Dates: start: 20191026
  22. DEXAMETHASONE [Concomitant]
     Active Substance: DEXAMETHASONE
     Dosage: D1-5
     Dates: start: 20191119
  23. DEXAMETHASONE [Concomitant]
     Active Substance: DEXAMETHASONE
     Dates: start: 20191213
  24. DEXAMETHASONE [Concomitant]
     Active Substance: DEXAMETHASONE
     Dates: start: 20200708, end: 20201031
  25. VINDESINE [Concomitant]
     Active Substance: VINDESINE
     Indication: Marginal zone lymphoma
     Dosage: D1
     Dates: start: 20170526
  26. VINDESINE [Concomitant]
     Active Substance: VINDESINE
     Dosage: D1
     Dates: start: 20191026
  27. VINDESINE [Concomitant]
     Active Substance: VINDESINE
     Dosage: D1
     Dates: start: 20191119
  28. VINDESINE [Concomitant]
     Active Substance: VINDESINE
     Dates: start: 20191213
  29. VINDESINE [Concomitant]
     Active Substance: VINDESINE
     Dates: start: 20200106
  30. VINDESINE [Concomitant]
     Active Substance: VINDESINE
     Dates: start: 20200708, end: 20201031
  31. DOXORUBICIN HYDROCHLORIDE [Concomitant]
     Active Substance: DOXORUBICIN HYDROCHLORIDE
     Indication: Marginal zone lymphoma
     Dosage: D4
     Dates: start: 20191119
  32. DOXORUBICIN HYDROCHLORIDE [Concomitant]
     Active Substance: DOXORUBICIN HYDROCHLORIDE
     Dates: start: 20191213
  33. DOXORUBICIN HYDROCHLORIDE [Concomitant]
     Active Substance: DOXORUBICIN HYDROCHLORIDE
     Dates: start: 20200708, end: 20201031
  34. LENALIDOMIDE [Concomitant]
     Active Substance: LENALIDOMIDE
     Indication: Marginal zone lymphoma
     Dosage: D1-10
     Dates: start: 20201124, end: 202208
  35. LENALIDOMIDE [Concomitant]
     Active Substance: LENALIDOMIDE
     Dosage: 17-SEP-2022, 08-OCT-2022, 08-NOV-2022, 05-DEC-2022; D2-15
  36. PREDNISONE [Concomitant]
     Active Substance: PREDNISONE
     Indication: Marginal zone lymphoma
     Dates: start: 20200106

REACTIONS (5)
  - Myelosuppression [Recovering/Resolving]
  - Sepsis [Recovering/Resolving]
  - Localised infection [Recovering/Resolving]
  - Upper respiratory tract infection [Unknown]
  - Off label use [Unknown]

NARRATIVE: CASE EVENT DATE: 20190101
